FAERS Safety Report 5412303-2 (Version None)
Quarter: 2007Q3

REPORT INFORMATION
  Report Type: 
  Country: None (occurrence: None)
  Receive Date: 20070810
  Receipt Date: 20070810
  Transmission Date: 20080115
  Serious: Yes (Life-Threatening, Hospitalization)
  Sender: FDA-Public Use
  Company Number: None

PATIENT
  Age: 35 Year
  Sex: Female
  Weight: 106 kg

DRUGS (2)
  1. KARIVA [Suspect]
     Indication: CONTRACEPTION
     Dosage: 1 TABLET DAILY PO
     Route: 048
     Dates: start: 20070716, end: 20070721
  2. MIRCETTE [Concomitant]

REACTIONS (6)
  - DEEP VEIN THROMBOSIS [None]
  - HAEMORRHAGE INTRACRANIAL [None]
  - INTRACRANIAL PRESSURE INCREASED [None]
  - INTRACRANIAL VENOUS SINUS THROMBOSIS [None]
  - PULMONARY EMBOLISM [None]
  - RETROPERITONEAL HAEMATOMA [None]
